FAERS Safety Report 6827791-4 (Version None)
Quarter: 2010Q3

REPORT INFORMATION
  Report Type: 
  Country: None (occurrence: None)
  Receive Date: 20100709
  Receipt Date: 20070128
  Transmission Date: 20110219
  Serious: No
  Sender: FDA-Public Use
  Company Number: US-PFIZER INC-2007008804

PATIENT
  Age: 53 Year
  Sex: Female
  Weight: 61.23 kg

DRUGS (13)
  1. CHANTIX [Suspect]
     Indication: SMOKING CESSATION THERAPY
     Dates: start: 20070101, end: 20070101
  2. PEPCID [Concomitant]
     Indication: GASTRIC ULCER
  3. PEPCID [Concomitant]
     Indication: GASTROOESOPHAGEAL REFLUX DISEASE
  4. PREVACID [Concomitant]
     Indication: GASTROOESOPHAGEAL REFLUX DISEASE
  5. PREMARIN [Concomitant]
     Indication: HYSTERECTOMY
  6. PAMELOR [Concomitant]
     Indication: DEPRESSION
  7. NEURONTIN [Concomitant]
     Indication: OSTEOARTHRITIS
  8. NEURONTIN [Concomitant]
     Indication: FIBROMYALGIA
  9. INDERAL [Concomitant]
     Indication: MIGRAINE
  10. VITAMINS [Concomitant]
  11. ANTIHYPERTENSIVES [Concomitant]
     Indication: HYPERTENSION
  12. CHOLESTEROL- AND TRIGLYCERIDE REDUCERS [Concomitant]
     Indication: BLOOD CHOLESTEROL INCREASED
  13. PROZAC [Concomitant]

REACTIONS (1)
  - IRRITABILITY [None]
